FAERS Safety Report 12664457 (Version 2)
Quarter: 2016Q3

REPORT INFORMATION
  Report Type: Spontaneous
  Country: US (occurrence: US)
  Receive Date: 20160818
  Receipt Date: 20160923
  Transmission Date: 20161109
  Serious: No
  Sender: FDA-Public Use
  Company Number: US-PFIZER INC-2016382064

PATIENT
  Age: 76 Year
  Sex: Male

DRUGS (1)
  1. ADVIL [Suspect]
     Active Substance: IBUPROFEN
     Indication: PAIN
     Dosage: 400 MG, 1X/DAY (TOOK 2 ADVIL LIQUIGELS CAPSULES, 200 MG EACH)
     Dates: start: 20160520

REACTIONS (4)
  - Foreign body [Unknown]
  - Pain [Unknown]
  - Mutism [Not Recovered/Not Resolved]
  - Dysgeusia [Unknown]

NARRATIVE: CASE EVENT DATE: 20160805
